FAERS Safety Report 5239933-5 (Version None)
Quarter: 2007Q1

REPORT INFORMATION
  Report Type: 
  Country: None (occurrence: None)
  Receive Date: 20070216
  Receipt Date: 20070207
  Transmission Date: 20070707
  Serious: Yes (Hospitalization, Other)
  Sender: FDA-Public Use
  Company Number: US-PFIZER INC-2006006824

PATIENT
  Sex: Female

DRUGS (1)
  1. BEXTRA [Suspect]
     Indication: OSTEOARTHRITIS

REACTIONS (6)
  - CARDIOVASCULAR DISORDER [None]
  - DEPRESSION [None]
  - DIARRHOEA [None]
  - GASTROINTESTINAL PAIN [None]
  - MYOCARDIAL INFARCTION [None]
  - WEIGHT DECREASED [None]
